FAERS Safety Report 12093595 (Version 1)
Quarter: 2016Q1

REPORT INFORMATION
  Report Type: Spontaneous
  Country: US (occurrence: US)
  Receive Date: 20160219
  Receipt Date: 20160219
  Transmission Date: 20160526
  Serious: No
  Sender: FDA-Public Use
  Company Number: US-FRI-1000073968

PATIENT
  Age: 43 Year
  Sex: Male

DRUGS (9)
  1. TRAZODONE [Concomitant]
     Active Substance: TRAZODONE HYDROCHLORIDE
  2. SAVELLA [Suspect]
     Active Substance: MILNACIPRAN HYDROCHLORIDE
     Dosage: 25 MG
     Dates: start: 201501
  3. GABAPENTIN. [Concomitant]
     Active Substance: GABAPENTIN
  4. SAVELLA [Suspect]
     Active Substance: MILNACIPRAN HYDROCHLORIDE
     Indication: FIBROMYALGIA
     Dosage: 12.5 MG
     Dates: start: 201501
  5. SAVELLA [Suspect]
     Active Substance: MILNACIPRAN HYDROCHLORIDE
     Dosage: 50 MG
     Dates: start: 201501
  6. SAVELLA [Suspect]
     Active Substance: MILNACIPRAN HYDROCHLORIDE
     Dosage: 100 MG
     Dates: start: 201501
  7. VITAMIN D [Concomitant]
     Active Substance: CHOLECALCIFEROL
  8. OMEPRAZOLE. [Concomitant]
     Active Substance: OMEPRAZOLE
  9. ZOLOFT [Concomitant]
     Active Substance: SERTRALINE HYDROCHLORIDE

REACTIONS (6)
  - Hyperhidrosis [Not Recovered/Not Resolved]
  - Nausea [Not Recovered/Not Resolved]
  - Chills [Not Recovered/Not Resolved]
  - Hypertension [Not Recovered/Not Resolved]
  - Intentional product misuse [Unknown]
  - Headache [Not Recovered/Not Resolved]

NARRATIVE: CASE EVENT DATE: 201501
